FAERS Safety Report 7712358-6 (Version None)
Quarter: 2011Q3

REPORT INFORMATION
  Report Type: 
  Country: None (occurrence: None)
  Receive Date: 20110826
  Receipt Date: 20110819
  Transmission Date: 20111222
  Serious: No
  Sender: FDA-Public Use
  Company Number: JP-ROCHE-793414

PATIENT
  Sex: Female
  Weight: 42 kg

DRUGS (10)
  1. DIOVAN [Concomitant]
     Route: 048
     Dates: start: 20100219
  2. LANSOPRAZOLE [Concomitant]
     Route: 048
     Dates: start: 20110510
  3. GLYBURIDE [Concomitant]
     Route: 048
  4. ASPIRIN [Concomitant]
     Route: 048
     Dates: start: 20100325
  5. DIAZEPAM [Concomitant]
     Indication: SEDATION
     Dosage: DOSAGE IS UNCERTAIN
     Route: 042
     Dates: start: 20110713, end: 20110713
  6. CALBLOCK [Concomitant]
     Route: 048
     Dates: start: 20100305
  7. ACTEMRA [Suspect]
     Indication: RHEUMATOID ARTHRITIS
     Route: 041
     Dates: start: 20110713, end: 20110713
  8. FESIN [Concomitant]
     Indication: IRON DEFICIENCY ANAEMIA
     Route: 041
     Dates: start: 20110708, end: 20110713
  9. PREDNISOLONE [Concomitant]
     Route: 048
     Dates: start: 20080516
  10. CRESTOR [Concomitant]
     Route: 048
     Dates: start: 20101012

REACTIONS (2)
  - PHLEBITIS [None]
  - INDURATION [None]
